FAERS Safety Report 24438749 (Version 1)
Quarter: 2024Q4

REPORT INFORMATION
  Report Type: Spontaneous
  Country: US (occurrence: None)
  Receive Date: 20241014
  Receipt Date: 20241014
  Transmission Date: 20250115
  Serious: Yes (Disabling)
  Sender: Public
  Company Number: None

PATIENT
  Age: 40 Year
  Sex: Male
  Weight: 76.5 kg

DRUGS (1)
  1. LEVOFLOXACIN [Suspect]
     Active Substance: LEVOFLOXACIN
     Indication: Diverticulitis
     Dosage: FREQUENCY : DAILY;?
     Route: 048
     Dates: start: 20240501, end: 20240607

REACTIONS (8)
  - Anxiety [None]
  - Myalgia [None]
  - Arthralgia [None]
  - Gastrooesophageal reflux disease [None]
  - Condition aggravated [None]
  - Dyskinesia [None]
  - Insomnia [None]
  - Pain [None]

NARRATIVE: CASE EVENT DATE: 20240507
